FAERS Safety Report 24727284 (Version 1)
Quarter: 2024Q4

REPORT INFORMATION
  Report Type: Spontaneous
  Country: US (occurrence: None)
  Receive Date: 20241211
  Receipt Date: 20241211
  Transmission Date: 20250114
  Serious: Yes (Hospitalization)
  Sender: Public
  Company Number: None

PATIENT
  Age: 56 Year
  Sex: Female
  Weight: 58.5 kg

DRUGS (1)
  1. KESIMPTA [Suspect]
     Active Substance: OFATUMUMAB
     Indication: Multiple sclerosis
     Dosage: OTHER FREQUENCY : EVERY 28 DAYS;?
     Route: 058
     Dates: start: 20240415, end: 20240425

REACTIONS (6)
  - Fall [None]
  - Pelvic fracture [None]
  - Neck injury [None]
  - Contusion [None]
  - Pain [None]
  - Therapeutic product effect decreased [None]

NARRATIVE: CASE EVENT DATE: 20241208
